FAERS Safety Report 8580400-9 (Version None)
Quarter: 2012Q2

REPORT INFORMATION
  Report Type: 
  Country: None (occurrence: None)
  Receive Date: 20120423
  Receipt Date: 20100607
  Transmission Date: 20120825
  Serious: Yes (Other)
  Sender: FDA-Public Use
  Company Number: PHHY2010US23010

PATIENT
  Age: 78 Year
  Sex: Female

DRUGS (2)
  1. EXJADE [Suspect]
     Indication: IRON OVERLOAD
     Dosage: 1125 MG,QHS, ORAL
     Route: 048
     Dates: start: 20100416, end: 20100430
  2. PROCRIT [Concomitant]

REACTIONS (3)
  - HYPERSENSITIVITY [None]
  - RASH MACULO-PAPULAR [None]
  - RASH GENERALISED [None]
